FAERS Safety Report 10094674 (Version 1)
Quarter: 2014Q2

REPORT INFORMATION
  Report Type: Spontaneous
  Country: RU (occurrence: RU)
  Receive Date: 20140422
  Receipt Date: 20140422
  Transmission Date: 20141212
  Serious: Yes (Other)
  Sender: FDA-Public Use
  Company Number: RU-ROCHE-1387571

PATIENT
  Age: 65 Year
  Sex: Female

DRUGS (5)
  1. HERCEPTIN [Suspect]
     Indication: BREAST CANCER
     Dosage: 8 MG/KG (787 MG) FOR 1 ADMINISTRATION
     Route: 042
     Dates: start: 201201
  2. HERCEPTIN [Suspect]
     Dosage: 5 ADMINISTRATIONS OF 6 MG/KG (590 MG) WITH 21 DAY BREAK
     Route: 042
     Dates: end: 201205
  3. PACLITAXEL [Concomitant]
     Route: 065
  4. PACLITAXEL [Concomitant]
     Dosage: (5 INJECTIONS WITH 21 DAY BREAK)
     Route: 041
  5. CARBOPLATIN [Concomitant]
     Dosage: AUC 6
     Route: 041

REACTIONS (1)
  - Disease progression [Not Recovered/Not Resolved]
